FAERS Safety Report 21306045 (Version 1)
Quarter: 2022Q3

REPORT INFORMATION
  Report Type: Other
  Country: CA (occurrence: CA)
  Receive Date: 20220908
  Receipt Date: 20220908
  Transmission Date: 20221027
  Serious: Yes (Other)
  Sender: FDA-Public Use
  Company Number: CA-APOTEX-2022AP012433

PATIENT
  Age: 70 Year
  Sex: Male

DRUGS (8)
  1. IMATINIB [Suspect]
     Active Substance: IMATINIB
     Indication: Chronic myeloid leukaemia
     Dosage: 600 MILLIGRAM, QD
     Route: 048
  2. IMATINIB [Suspect]
     Active Substance: IMATINIB
     Dosage: 400 MILLIGRAM, QD
     Route: 048
  3. IMATINIB [Suspect]
     Active Substance: IMATINIB
     Dosage: UNK
     Route: 048
  4. IMATINIB [Suspect]
     Active Substance: IMATINIB
     Dosage: 200 MILLIGRAM, QD
     Route: 048
  5. TASIGNA [Suspect]
     Active Substance: NILOTINIB
     Indication: Chronic myeloid leukaemia
     Dosage: 400 MILLIGRAM, BID
     Route: 048
  6. TASIGNA [Suspect]
     Active Substance: NILOTINIB
     Dosage: 600 MILLIGRAM
     Route: 048
  7. TASIGNA [Suspect]
     Active Substance: NILOTINIB
     Dosage: 300 MILLIGRAM, QD
     Route: 048
  8. TASIGNA [Suspect]
     Active Substance: NILOTINIB
     Dosage: 450 MILLIGRAM
     Route: 048

REACTIONS (9)
  - Adverse drug reaction [Recovered/Resolved]
  - Blood iron increased [Recovered/Resolved]
  - Full blood count decreased [Recovered/Resolved]
  - Wrong technique in product usage process [Recovered/Resolved]
  - White blood cell count decreased [Recovered/Resolved]
  - Erythema [Recovered/Resolved]
  - Platelet count decreased [Recovered/Resolved]
  - Muscle spasms [Recovered/Resolved]
  - Haemoglobin decreased [Recovered/Resolved]
